FAERS Safety Report 14407042 (Version 3)
Quarter: 2019Q2

REPORT INFORMATION
  Report Type: Spontaneous
  Country: CA (occurrence: CA)
  Receive Date: 20180118
  Receipt Date: 20190617
  Transmission Date: 20190711
  Serious: Yes (Hospitalization, Disabling)
  Sender: FDA-Public Use
  Company Number: CA-PFIZER INC-2357487

PATIENT
  Age: 65 Year
  Sex: Female

DRUGS (2)
  1. CEFAZOLIN [Suspect]
     Active Substance: CEFAZOLIN
     Indication: ANTIBIOTIC PROPHYLAXIS
     Dosage: 2 G, UNK
  2. METRONIDAZOLE. [Suspect]
     Active Substance: METRONIDAZOLE
     Indication: ANTIBIOTIC PROPHYLAXIS
     Dosage: 500 MG, UNK

REACTIONS (5)
  - Vitamin K deficiency [Recovered/Resolved]
  - Spinal cord haematoma [Recovered/Resolved]
  - Coagulopathy [Recovered/Resolved]
  - Dysbiosis [Recovered/Resolved]
  - Paraplegia [Recovering/Resolving]
